FAERS Safety Report 16536871 (Version 1)
Quarter: 2019Q3

REPORT INFORMATION
  Report Type: Spontaneous
  Country: CA (occurrence: CA)
  Receive Date: 20190707
  Receipt Date: 20190707
  Transmission Date: 20191004
  Serious: Yes (Hospitalization, Disabling)
  Sender: FDA-Public Use
  Company Number: CA-AMGEN-CANSP2019097435

PATIENT
  Age: 44 Year
  Sex: Female

DRUGS (35)
  1. CLONAZEPAM. [Concomitant]
     Active Substance: CLONAZEPAM
     Dosage: 0.5 MILLIGRAM
  2. ATIVAN [Concomitant]
     Active Substance: LORAZEPAM
     Dosage: 1 MILLIGRAM
  3. MOBICOX [Concomitant]
     Active Substance: MELOXICAM
  4. ACTONEL [Concomitant]
     Active Substance: RISEDRONATE SODIUM
  5. CIPRO [Concomitant]
     Active Substance: CIPROFLOXACIN HYDROCHLORIDE
  6. SYMBICORT [Concomitant]
     Active Substance: BUDESONIDE\FORMOTEROL FUMARATE DIHYDRATE
     Dosage: 200 UNK
  7. VAGIFEM [Concomitant]
     Active Substance: ESTRADIOL
     Dosage: 10 MICROGRAM
  8. VALIUM [Concomitant]
     Active Substance: DIAZEPAM
  9. DILAUDID [Concomitant]
     Active Substance: HYDROMORPHONE HYDROCHLORIDE
  10. TOPAMAX [Concomitant]
     Active Substance: TOPIRAMATE
     Dosage: 200 MICROGRAM
  11. LOPERAMIDE [Concomitant]
     Active Substance: LOPERAMIDE
  12. GABAPENTIN. [Concomitant]
     Active Substance: GABAPENTIN
     Indication: DYSPHAGIA
     Dosage: 100 MILLIGRAM
  13. CARBAMAZEPINE. [Concomitant]
     Active Substance: CARBAMAZEPINE
     Dosage: 200 MILLIGRAM
  14. OXYNEO [Concomitant]
     Active Substance: OXYCODONE
     Dosage: 20 MILLIGRAM
  15. KEFLEX [Concomitant]
     Active Substance: CEPHALEXIN
  16. SEROQUEL [Concomitant]
     Active Substance: QUETIAPINE FUMARATE
     Dosage: 25 MILLIGRAM
  17. CHAMPIX [Concomitant]
     Active Substance: VARENICLINE TARTRATE
  18. FENTANYL. [Concomitant]
     Active Substance: FENTANYL
     Dosage: 50 MICROGRAM
  19. SENOKOT [Concomitant]
     Active Substance: SENNOSIDES
  20. BIAXIN [Concomitant]
     Active Substance: CLARITHROMYCIN
     Dosage: 500 MILLIGRAM, BID
  21. METOPROLOL. [Concomitant]
     Active Substance: METOPROLOL
     Route: 048
  22. CEFZIL [Concomitant]
     Active Substance: CEFPROZIL
     Dosage: 500 MILLIGRAM
  23. MACROBID [Concomitant]
     Active Substance: NITROFURANTOIN\NITROFURANTOIN MONOHYDRATE
  24. COLACE [Concomitant]
     Active Substance: DOCUSATE SODIUM
     Dosage: 100 MILLIGRAM
  25. VARENICLINE [Concomitant]
     Active Substance: VARENICLINE
  26. ANUSOL [ZINC SULFATE] [Concomitant]
  27. PERCOCET [OXYCODONE HYDROCHLORIDE;OXYCODONE TEREPHTHALATE;PARACETAMOL] [Concomitant]
     Active Substance: ACETAMINOPHEN\OXYCODONE HYDROCHLORIDE\OXYCODONE TEREPHTHALATE
  28. PROLIA [Suspect]
     Active Substance: DENOSUMAB
     Indication: OSTEOPOROSIS
     Dosage: 60 MILLIGRAM
     Route: 058
     Dates: start: 20190522, end: 2019
  29. NAPROXEN. [Concomitant]
     Active Substance: NAPROXEN
  30. BACLOFEN. [Concomitant]
     Active Substance: BACLOFEN
  31. FLAGYL [Concomitant]
     Active Substance: METRONIDAZOLE\METRONIDAZOLE HYDROCHLORIDE
  32. INFLUENZA VACCIN [Concomitant]
     Active Substance: INFLUENZA VIRUS VACCINE
  33. POLYETHYLENE GLYCOL 3350. [Concomitant]
     Active Substance: POLYETHYLENE GLYCOL 3350
  34. VENTOLIN HFA [Concomitant]
     Active Substance: ALBUTEROL SULFATE
     Dosage: 100 MICROGRAM
  35. LYRICA [Concomitant]
     Active Substance: PREGABALIN
     Indication: URTICARIA

REACTIONS (9)
  - Tinnitus [Not Recovered/Not Resolved]
  - Pain in jaw [Not Recovered/Not Resolved]
  - Fall [Unknown]
  - Diarrhoea [Not Recovered/Not Resolved]
  - Weight decreased [Unknown]
  - Nausea [Not Recovered/Not Resolved]
  - Dehydration [Not Recovered/Not Resolved]
  - Headache [Unknown]
  - Dyspnoea [Unknown]

NARRATIVE: CASE EVENT DATE: 2019
